FAERS Safety Report 21145003 (Version 4)
Quarter: 2022Q3

REPORT INFORMATION
  Report Type: Spontaneous
  Country: US (occurrence: US)
  Receive Date: 20220728
  Receipt Date: 20220915
  Transmission Date: 20221027
  Serious: No
  Sender: FDA-Public Use
  Company Number: US-JNJFOC-20220743850

PATIENT
  Sex: Female
  Weight: 110.32 kg

DRUGS (1)
  1. TREMFYA [Suspect]
     Active Substance: GUSELKUMAB
     Indication: Psoriatic arthropathy
     Route: 058

REACTIONS (7)
  - Drug delivery system malfunction [Unknown]
  - Product quality issue [Unknown]
  - Accidental exposure to product [Unknown]
  - Pain [Unknown]
  - Therapeutic response decreased [Unknown]
  - Product dose omission issue [Unknown]
  - Panic reaction [Unknown]
